FAERS Safety Report 6230963-3 (Version None)
Quarter: 2009Q2

REPORT INFORMATION
  Report Type: 
  Country: None (occurrence: None)
  Receive Date: 20090616
  Receipt Date: 20090609
  Transmission Date: 20091009
  Serious: Yes (Other)
  Sender: FDA-Public Use
  Company Number: US-BAYER-200921502NA

PATIENT
  Age: 28 Year
  Sex: Female
  Weight: 66 kg

DRUGS (4)
  1. MIRENA [Suspect]
     Indication: CONTRACEPTION
     Dosage: CONTINUOUS DELIVERY
     Route: 015
     Dates: start: 20090512, end: 20090512
  2. MIRENA [Suspect]
     Dosage: CONTINUOUS DELIVERY
     Route: 015
     Dates: start: 20090512
  3. TOPAMAX [Concomitant]
     Route: 048
     Dates: start: 20070401
  4. VITAMIN TAB [Concomitant]
     Indication: POSTPARTUM STATE
     Route: 048

REACTIONS (5)
  - CONVULSION [None]
  - INTRA-UTERINE CONTRACEPTIVE DEVICE EXPELLED [None]
  - MIGRAINE [None]
  - NAUSEA [None]
  - POSTICTAL HEADACHE [None]
